FAERS Safety Report 5375883-1 (Version None)
Quarter: 2007Q2

REPORT INFORMATION
  Report Type: 
  Country: None (occurrence: None)
  Receive Date: 20070627
  Receipt Date: 20070627
  Transmission Date: 20071010
  Serious: No
  Sender: FDA-Public Use
  Company Number: None

PATIENT
  Sex: Female
  Weight: 79.3795 kg

DRUGS (5)
  1. TARKA [Suspect]
     Indication: HYPERTENSION
     Dosage: 2/240 Q AM PO
     Route: 048
     Dates: start: 20070525, end: 20070601
  2. ZYRTEC [Concomitant]
  3. TRILEVEN 28 [Concomitant]
  4. ALBUTEROL [Concomitant]
  5. ADVAIR DISKUS 100/50 [Concomitant]

REACTIONS (1)
  - LIP SWELLING [None]
